FAERS Safety Report 13681887 (Version 1)
Quarter: 2017Q2

REPORT INFORMATION
  Report Type: Spontaneous
  Country: US (occurrence: US)
  Receive Date: 20170622
  Receipt Date: 20170622
  Transmission Date: 20170830
  Serious: No
  Sender: FDA-Public Use
  Company Number: None

PATIENT
  Age: 45 Year
  Sex: Female

DRUGS (1)
  1. HARVONI [Suspect]
     Active Substance: LEDIPASVIR\SOFOSBUVIR
     Dosage: 90-400MG QD ORAL
     Route: 048
     Dates: start: 20170605, end: 20170622

REACTIONS (3)
  - Nausea [None]
  - Feeling abnormal [None]
  - Eye disorder [None]

NARRATIVE: CASE EVENT DATE: 20170605
